FAERS Safety Report 4502390-8 (Version None)
Quarter: 2004Q4

REPORT INFORMATION
  Report Type: 
  Country: None (occurrence: None)
  Receive Date: 20041116
  Receipt Date: 20040928
  Transmission Date: 20050328
  Serious: Yes (Hospitalization)
  Sender: FDA-Public Use
  Company Number: US-BRISTOL-MYERS SQUIBB COMPANY-12714499

PATIENT
  Age: 59 Year
  Sex: Female
  Weight: 73 kg

DRUGS (21)
  1. CARBOPLATIN [Suspect]
     Indication: BREAST CANCER METASTATIC
     Dosage: AUC = 2.5 INITIAL DOSE: 22-APR-2004
     Route: 042
     Dates: start: 20040604, end: 20040604
  2. GEMCITABINE [Suspect]
     Indication: BREAST CANCER METASTATIC
     Dosage: INITIAL DOSE: 22-APR-2004
     Route: 042
     Dates: start: 20040604, end: 20040604
  3. TISSUE PLASMINOGEN ACTIVATOR RECOMB [Concomitant]
     Indication: THROMBOSIS
     Dates: start: 20040422
  4. GLUCOPHAGE [Concomitant]
     Indication: DIABETES MELLITUS
     Dates: start: 20000801
  5. GLUCOTROL [Concomitant]
     Indication: DIABETES MELLITUS
     Dates: start: 20031101
  6. SYNTHROID [Concomitant]
     Indication: HYPOTHYROIDISM
     Dates: start: 20000101
  7. ZOCOR [Concomitant]
     Indication: CORONARY ARTERY DISEASE
     Dates: start: 19940101
  8. FOSAMAX [Concomitant]
     Indication: OSTEOPOROSIS
     Dates: start: 20020101
  9. KYTRIL [Concomitant]
     Indication: NAUSEA
     Dates: start: 20040422
  10. COUMADIN [Concomitant]
     Indication: PROPHYLAXIS
     Dosage: PORT PATENCY
     Dates: start: 20040422
  11. COMPAZINE [Concomitant]
     Indication: NAUSEA
     Dates: start: 20040422
  12. MILK OF MAGNESIA TAB [Concomitant]
     Indication: CONSTIPATION
     Dates: start: 20040301
  13. ULTRAM [Concomitant]
     Indication: PAIN
     Dates: start: 20040422
  14. ARANESP [Concomitant]
     Indication: ANAEMIA
     Dates: start: 20040507
  15. SENOKOT [Concomitant]
     Indication: CONSTIPATION
     Dates: start: 20040510
  16. DONNATAL [Concomitant]
     Indication: INTESTINAL SPASM
     Dates: start: 20040512, end: 20040903
  17. LORAZEPAM [Concomitant]
     Indication: NAUSEA
     Dates: start: 20040514
  18. PREVACID [Concomitant]
  19. ASPIRIN [Concomitant]
  20. ACTONEL [Concomitant]
  21. DYAZIDE [Concomitant]

REACTIONS (3)
  - ABDOMINAL RIGIDITY [None]
  - INTESTINAL OBSTRUCTION [None]
  - VENA CAVA THROMBOSIS [None]
